FAERS Safety Report 23432208 (Version 2)
Quarter: 2024Q2

REPORT INFORMATION
  Report Type: Spontaneous
  Country: FR (occurrence: FR)
  Receive Date: 20240123
  Receipt Date: 20240405
  Transmission Date: 20240716
  Serious: Yes (Hospitalization)
  Sender: FDA-Public Use
  Company Number: FR-SUN PHARMACEUTICAL INDUSTRIES LTD-2024RR-428312

PATIENT
  Age: 64 Year
  Sex: Male
  Weight: 88 kg

DRUGS (3)
  1. VALACYCLOVIR [Suspect]
     Active Substance: VALACYCLOVIR HYDROCHLORIDE
     Indication: Prophylaxis
     Dosage: 500 MILLIGRAM, BID
     Route: 048
     Dates: start: 20230811, end: 20230825
  2. ELIQUIS [Suspect]
     Active Substance: APIXABAN
     Indication: Prophylaxis
     Dosage: 2 PER DAY
     Route: 048
     Dates: start: 20230811, end: 20230825
  3. BACTRIM [Suspect]
     Active Substance: SULFAMETHOXAZOLE\TRIMETHOPRIM
     Indication: Prophylaxis
     Dosage: 1 PER DAY
     Route: 048
     Dates: start: 20230811, end: 20230825

REACTIONS (1)
  - Rash maculo-papular [Recovering/Resolving]

NARRATIVE: CASE EVENT DATE: 20230823
